FAERS Safety Report 11847967 (Version 3)
Quarter: 2016Q2

REPORT INFORMATION
  Report Type: Report from Study
  Country: US (occurrence: US)
  Receive Date: 20151217
  Receipt Date: 20160506
  Transmission Date: 20160815
  Serious: Yes (Death, Hospitalization, Other)
  Sender: FDA-Public Use
  Company Number: US-ACTELION-A-NJ2015-126684

PATIENT
  Age: 67 Year
  Sex: Female

DRUGS (2)
  1. MACITENTAN [Suspect]
     Active Substance: MACITENTAN
     Indication: PULMONARY HYPERTENSION
     Dosage: 10 MG, QD
     Route: 048
     Dates: start: 20150206, end: 20160412
  2. COUMADIN [Concomitant]
     Active Substance: WARFARIN SODIUM

REACTIONS (17)
  - Death [Fatal]
  - Haematological malignancy [Unknown]
  - Epistaxis [Not Recovered/Not Resolved]
  - Polycythaemia [Not Recovered/Not Resolved]
  - Splenectomy [Not Recovered/Not Resolved]
  - Cardiac pacemaker insertion [Unknown]
  - Pleural effusion [Unknown]
  - Cardiac failure acute [Not Recovered/Not Resolved]
  - Transfusion [Not Recovered/Not Resolved]
  - Pneumonia [Unknown]
  - Splenomegaly [Not Recovered/Not Resolved]
  - Aspiration pleural cavity [Unknown]
  - Acute respiratory failure [Unknown]
  - Atrial fibrillation [Not Recovered/Not Resolved]
  - Thrombocytopenia [Not Recovered/Not Resolved]
  - Lung infection [Unknown]
  - Sepsis [Unknown]

NARRATIVE: CASE EVENT DATE: 20160412
